FAERS Safety Report 6867256-7 (Version None)
Quarter: 2010Q3

REPORT INFORMATION
  Report Type: 
  Country: None (occurrence: None)
  Receive Date: 20100721
  Receipt Date: 20100721
  Transmission Date: 20110219
  Serious: Yes (Hospitalization, Disabling, Other)
  Sender: FDA-Public Use
  Company Number: None

PATIENT
  Age: 51 Year
  Sex: Female
  Weight: 47.6277 kg

DRUGS (1)
  1. NEURONTIN [Suspect]
     Indication: NEUROPATHY PERIPHERAL
     Dosage: 300 MG TID BY MOUTH
     Route: 048
     Dates: start: 20091219

REACTIONS (21)
  - ALOPECIA [None]
  - AMNESIA [None]
  - BEDRIDDEN [None]
  - BLISTER [None]
  - CLUMSINESS [None]
  - DEPRESSION [None]
  - DYSPHAGIA [None]
  - HYPOAESTHESIA [None]
  - INSOMNIA [None]
  - IRRITABILITY [None]
  - LOGORRHOEA [None]
  - MUSCLE SPASMS [None]
  - MUSCULAR WEAKNESS [None]
  - NO THERAPEUTIC RESPONSE [None]
  - PAIN IN EXTREMITY [None]
  - PARAESTHESIA [None]
  - PERIPHERAL COLDNESS [None]
  - RASH [None]
  - SUICIDAL IDEATION [None]
  - VISION BLURRED [None]
  - WEIGHT DECREASED [None]
